FAERS Safety Report 4604132-4 (Version None)
Quarter: 2005Q1

REPORT INFORMATION
  Report Type: 
  Country: None (occurrence: None)
  Receive Date: 20050309
  Receipt Date: 20050309
  Transmission Date: 20050727
  Serious: Yes (Hospitalization, Other)
  Sender: FDA-Public Use
  Company Number: None

PATIENT
  Age: 70 Year
  Sex: Female
  Weight: 92.5 kg

DRUGS (17)
  1. WARFARIN [Suspect]
     Indication: ATRIAL FIBRILLATION
     Dosage: 5 MG PO DAILY [CHRONIC]
     Route: 048
  2. WARFARIN [Suspect]
     Indication: CEREBROVASCULAR ACCIDENT
     Dosage: 5 MG PO DAILY [CHRONIC]
     Route: 048
  3. ASPIRIN [Suspect]
     Indication: ATRIAL FIBRILLATION
     Dosage: 81 MG PO DAILY [CHRONIC]
     Route: 048
  4. ASPIRIN [Suspect]
     Indication: CEREBROVASCULAR ACCIDENT
     Dosage: 81 MG PO DAILY [CHRONIC]
     Route: 048
  5. LASIX [Concomitant]
  6. TRICOR [Concomitant]
  7. COREG [Concomitant]
  8. ISOSORBIDE MONONITRATE [Concomitant]
  9. ZYRTEC [Concomitant]
  10. CALTRATE [Concomitant]
  11. PREDNISONE [Concomitant]
  12. INSULIN [Concomitant]
  13. VICODIN [Concomitant]
  14. VITAMINS [Concomitant]
  15. ELAVIL [Concomitant]
  16. LIPITOR [Concomitant]
  17. ACTOS [Concomitant]

REACTIONS (6)
  - CARDIAC FAILURE CONGESTIVE [None]
  - COAGULOPATHY [None]
  - ECCHYMOSIS [None]
  - HAEMORRHAGE [None]
  - INTERNATIONAL NORMALISED RATIO INCREASED [None]
  - OEDEMA PERIPHERAL [None]
